FAERS Safety Report 13076885 (Version 1)
Quarter: 2016Q4

REPORT INFORMATION
  Report Type: Spontaneous
  Country: CH (occurrence: CH)
  Receive Date: 20161230
  Receipt Date: 20161230
  Transmission Date: 20170207
  Serious: Yes (Hospitalization)
  Sender: FDA-Public Use
  Company Number: CH-PFIZER INC-2016590886

PATIENT
  Age: 26 Year
  Sex: Male
  Weight: 64 kg

DRUGS (5)
  1. MINIRIN [Interacting]
     Active Substance: DESMOPRESSIN ACETATE
     Indication: URINARY INCONTINENCE
     Dosage: 0.2 MG, 2X/DAY
     Route: 048
  2. TYSABRI [Concomitant]
     Active Substance: NATALIZUMAB
     Dosage: 300 MG, MONTHLY
     Route: 041
  3. NEUPRO [Concomitant]
     Active Substance: ROTIGOTINE
     Dosage: 4 MG, 1X/DAY
     Route: 062
  4. BETMIGA [Interacting]
     Active Substance: MIRABEGRON
     Indication: URINARY INCONTINENCE
     Dosage: 50 MG, 1X/DAY
     Route: 048
  5. TOVIAZ [Suspect]
     Active Substance: FESOTERODINE FUMARATE
     Indication: URINARY INCONTINENCE
     Dosage: 8 MG, 1X/DAY
     Route: 048

REACTIONS (4)
  - Drug interaction [Recovered/Resolved]
  - Urinary retention [Recovered/Resolved]
  - Hydronephrosis [Recovered/Resolved]
  - Acute kidney injury [Recovered/Resolved]

NARRATIVE: CASE EVENT DATE: 201608
